FAERS Safety Report 7134329-3 (Version None)
Quarter: 2010Q4

REPORT INFORMATION
  Report Type: 
  Country: None (occurrence: None)
  Receive Date: 20101203
  Receipt Date: 20101124
  Transmission Date: 20110411
  Serious: Yes (Other)
  Sender: FDA-Public Use
  Company Number: CA-JNJFOC-20101200178

PATIENT
  Sex: Male

DRUGS (4)
  1. REMICADE [Suspect]
     Indication: CROHN'S DISEASE
     Dosage: 47TH DOSE
     Route: 042
  2. REMICADE [Suspect]
     Route: 042
  3. BENADRYL [Concomitant]
     Indication: PREMEDICATION
     Route: 048
  4. PREDNISONE [Concomitant]
     Indication: PREMEDICATION
     Dosage: 50 MG 13 HOURS, 7 HOURS, AND 1 HOUR BEFORE INFUSION
     Route: 048

REACTIONS (5)
  - COLON CANCER [None]
  - EXCESSIVE GRANULATION TISSUE [None]
  - FISTULA [None]
  - IMPAIRED HEALING [None]
  - PYODERMA GANGRENOSUM [None]
